FAERS Safety Report 14595571 (Version 1)
Quarter: 2018Q1

REPORT INFORMATION
  Report Type: Spontaneous
  Country: US (occurrence: US)
  Receive Date: 20180303
  Receipt Date: 20180303
  Transmission Date: 20180509
  Serious: Yes (Other)
  Sender: FDA-Public Use
  Company Number: US-CIPLA (EU) LIMITED-2018US07876

PATIENT

DRUGS (4)
  1. LOSARTAN. [Suspect]
     Active Substance: LOSARTAN
     Indication: CHEST PAIN
     Dosage: UNK
     Route: 065
  2. CARVEDILOL. [Suspect]
     Active Substance: CARVEDILOL
     Indication: STRESS CARDIOMYOPATHY
  3. LOSARTAN. [Suspect]
     Active Substance: LOSARTAN
     Indication: STRESS CARDIOMYOPATHY
  4. CARVEDILOL. [Suspect]
     Active Substance: CARVEDILOL
     Indication: CHEST PAIN
     Dosage: UNK
     Route: 065

REACTIONS (2)
  - Chest pain [Recovered/Resolved]
  - Troponin I increased [Recovered/Resolved]
